FAERS Safety Report 17798758 (Version 2)
Quarter: 2020Q3

REPORT INFORMATION
  Report Type: Report from Study
  Country: CA (occurrence: CA)
  Receive Date: 20200518
  Receipt Date: 20200701
  Transmission Date: 20201102
  Serious: Yes (Other)
  Sender: FDA-Public Use
  Company Number: CA-EMD SERONO-9162784

PATIENT
  Age: 32 Year
  Sex: Male

DRUGS (1)
  1. BAVENCIO [Suspect]
     Active Substance: AVELUMAB
     Indication: PERITONEAL MESOTHELIOMA MALIGNANT
     Dosage: 800 MG
     Route: 042
     Dates: start: 20190514

REACTIONS (3)
  - Pleural effusion [Unknown]
  - Off label use [Unknown]
  - Ascites [Unknown]

NARRATIVE: CASE EVENT DATE: 20200109
